FAERS Safety Report 11079730 (Version 3)
Quarter: 2015Q2

REPORT INFORMATION
  Report Type: Report from Study
  Country: US (occurrence: US)
  Receive Date: 20150430
  Receipt Date: 20150629
  Transmission Date: 20150821
  Serious: Yes (Other)
  Sender: FDA-Public Use
  Company Number: US-BAYER-2015-117072

PATIENT
  Age: 57 Year
  Sex: Female

DRUGS (5)
  1. STIVARGA [Suspect]
     Active Substance: REGORAFENIB
     Indication: COLON CANCER METASTATIC
     Dosage: 4 TABLETS BY MOUTH DAILY FOR 21 OUT OF 28 DAYS
     Route: 048
     Dates: start: 20150402, end: 201504
  2. STIVARGA [Suspect]
     Active Substance: REGORAFENIB
     Indication: COLON CANCER METASTATIC
     Dosage: 2 TABLETS BY MOUTH DAILY FOR 21 OUT OF 28 DAYS
     Route: 048
     Dates: start: 201504, end: 20150616
  3. RYTHMOL [Concomitant]
     Active Substance: PROPAFENONE HYDROCHLORIDE
  4. METOPROLOL [Concomitant]
     Active Substance: METOPROLOL
  5. STIVARGA [Suspect]
     Active Substance: REGORAFENIB
     Indication: COLON CANCER METASTATIC
     Dosage: 4 TABLETS BY MOUTH DAILY FOR 21 OUT OF 28 DAYS
     Route: 048
     Dates: start: 20150402, end: 201504

REACTIONS (11)
  - Application site exfoliation [Not Recovered/Not Resolved]
  - Drug ineffective [None]
  - Dehydration [Recovered/Resolved]
  - Colon cancer [None]
  - Headache [None]
  - Gait disturbance [Recovered/Resolved]
  - Application site discolouration [Not Recovered/Not Resolved]
  - Oral pain [Recovered/Resolved]
  - Asthenia [Recovered/Resolved]
  - Blood pressure increased [None]
  - Oropharyngeal pain [Recovered/Resolved]

NARRATIVE: CASE EVENT DATE: 20150409
